FAERS Safety Report 7379221-4 (Version None)
Quarter: 2011Q1

REPORT INFORMATION
  Report Type: 
  Country: None (occurrence: None)
  Receive Date: 20110328
  Receipt Date: 20110318
  Transmission Date: 20110831
  Serious: Yes (Hospitalization, Other)
  Sender: FDA-Public Use
  Company Number: US-MERCK-1103USA01602

PATIENT
  Age: 64 Year
  Sex: Female
  Weight: 57 kg

DRUGS (3)
  1. CELEBREX [Concomitant]
     Route: 065
  2. FOSAMAX [Suspect]
     Indication: OSTEOPOROSIS
     Route: 048
     Dates: start: 20040114
  3. FOSAMAX PLUS D [Suspect]
     Route: 048
     Dates: end: 20100831

REACTIONS (11)
  - ARTHRITIS [None]
  - JAW DISORDER [None]
  - ORAL DISORDER [None]
  - MASTICATION DISORDER [None]
  - HYPOTHYROIDISM [None]
  - ARTICULAR DISC DISORDER [None]
  - BREAST MASS [None]
  - PAIN IN JAW [None]
  - RADIATION ASSOCIATED PAIN [None]
  - OSTEOARTHRITIS [None]
  - TEMPOROMANDIBULAR JOINT SYNDROME [None]
